FAERS Safety Report 8135183-3 (Version None)
Quarter: 2012Q1

REPORT INFORMATION
  Report Type: 
  Country: None (occurrence: None)
  Receive Date: 20120210
  Receipt Date: 20120206
  Transmission Date: 20120608
  Serious: Yes (Death)
  Sender: FDA-Public Use
  Company Number: SP05531

PATIENT
  Age: 47 Year
  Sex: Male

DRUGS (1)
  1. XIFAXAN [Suspect]
     Dosage: 1100 MG (550 MG, 2 IN 1 D), ORAL
     Route: 048

REACTIONS (3)
  - HAEMATOMA [None]
  - FALL [None]
  - CRANIOCEREBRAL INJURY [None]
